FAERS Safety Report 6961153-4 (Version None)
Quarter: 2010Q3

REPORT INFORMATION
  Report Type: 
  Country: None (occurrence: None)
  Receive Date: 20100901
  Receipt Date: 20100822
  Transmission Date: 20110219
  Serious: Yes (Other)
  Sender: FDA-Public Use
  Company Number: EG-BAYER-201036939GPV

PATIENT
  Age: 55 Year
  Sex: Female
  Weight: 96 kg

DRUGS (7)
  1. ADALAT [Suspect]
     Indication: HYPERTENSION
     Dosage: TOTAL DAILY DOSE: 30 MG
     Dates: start: 20100819, end: 20100821
  2. LASILACTONE [Concomitant]
     Indication: HYPERTENSION
     Dates: start: 20100819
  3. LASILACTONE [Concomitant]
     Dates: start: 20060101, end: 20100601
  4. ROWACOL [Concomitant]
     Indication: CHOLECYSTITIS CHRONIC
     Route: 048
     Dates: start: 20100630
  5. GASTRAZOL [Concomitant]
     Indication: CHOLECYSTITIS CHRONIC
     Dates: start: 20100630
  6. AMARYL [Concomitant]
     Indication: DIABETES MELLITUS
     Dosage: TOTAL DAILY DOSE: 2 MG
     Dates: start: 20100630
  7. LASILACTONE [Concomitant]
     Dosage: TOTAL DAILY DOSE: 100 MG
     Route: 048
     Dates: start: 20100821

REACTIONS (2)
  - ACUTE PULMONARY OEDEMA [None]
  - LEFT VENTRICULAR FAILURE [None]
